FAERS Safety Report 13588533 (Version 2)
Quarter: 2017Q3

REPORT INFORMATION
  Report Type: Report from Study
  Country: US (occurrence: US)
  Receive Date: 20170529
  Receipt Date: 20170727
  Transmission Date: 20171127
  Serious: Yes (Other)
  Sender: FDA-Public Use
  Company Number: PHHY2016US053742

PATIENT

DRUGS (17)
  1. TOBI PODHALER [Suspect]
     Active Substance: TOBRAMYCIN
     Dosage: 2 DF (112), QD
     Route: 055
     Dates: start: 20160616, end: 20160724
  2. TOBI PODHALER [Suspect]
     Active Substance: TOBRAMYCIN
     Dosage: 2 DF (112), QD
     Route: 055
     Dates: start: 20170602
  3. CAYSTON [Suspect]
     Active Substance: AZTREONAM
     Indication: PRODUCT USED FOR UNKNOWN INDICATION
     Dosage: 3 DF (75), QD
     Route: 065
     Dates: start: 20160322, end: 20160419
  4. CAYSTON [Suspect]
     Active Substance: AZTREONAM
     Dosage: 3 DF (75), QD
     Route: 065
     Dates: start: 20161125, end: 20161223
  5. CAYSTON [Suspect]
     Active Substance: AZTREONAM
     Dosage: 3 DF (75), QD
     Route: 065
     Dates: start: 20170504, end: 20170601
  6. TOBI PODHALER [Suspect]
     Active Substance: TOBRAMYCIN
     Indication: CYSTIC FIBROSIS
     Dosage: 2 DF (112), QD
     Route: 055
     Dates: start: 20160223, end: 20160321
  7. TOBI PODHALER [Suspect]
     Active Substance: TOBRAMYCIN
     Dosage: 2 DF (112), QD
     Route: 055
     Dates: start: 20161028, end: 20161124
  8. CAYSTON [Suspect]
     Active Substance: AZTREONAM
     Dosage: 3 DF (75), QD
     Route: 065
     Dates: start: 20170308, end: 20170408
  9. TOBI PODHALER [Suspect]
     Active Substance: TOBRAMYCIN
     Dosage: 2 DF (112), QD
     Route: 055
     Dates: start: 20160823, end: 20160920
  10. TOBI PODHALER [Suspect]
     Active Substance: TOBRAMYCIN
     Dosage: 2 DF (112), QD
     Route: 055
     Dates: start: 20170219, end: 20170319
  11. CAYSTON [Suspect]
     Active Substance: AZTREONAM
     Dosage: 3 DF (75), QD
     Route: 065
     Dates: start: 20160725, end: 20160822
  12. TOBI PODHALER [Suspect]
     Active Substance: TOBRAMYCIN
     Dosage: 2 DF (112), QD
     Route: 055
     Dates: start: 20170409, end: 20170503
  13. CAYSTON [Suspect]
     Active Substance: AZTREONAM
     Dosage: 3 DF (75), QD
     Route: 065
     Dates: start: 20160518, end: 20160609
  14. CAYSTON [Suspect]
     Active Substance: AZTREONAM
     Dosage: 3 DF (75), QD
     Route: 065
     Dates: start: 20170121, end: 20170218
  15. TOBI PODHALER [Suspect]
     Active Substance: TOBRAMYCIN
     Indication: PSEUDOMONAS INFECTION
     Dosage: 2 DF (112), QD
     Route: 055
     Dates: start: 20160420, end: 20160517
  16. TOBI PODHALER [Suspect]
     Active Substance: TOBRAMYCIN
     Dosage: 2 DF (112), QD
     Route: 055
     Dates: start: 20161224, end: 20170120
  17. CAYSTON [Suspect]
     Active Substance: AZTREONAM
     Dosage: 3 DF (75), QD
     Route: 065
     Dates: start: 20160929, end: 20161027

REACTIONS (17)
  - Infective pulmonary exacerbation of cystic fibrosis [Recovered/Resolved]
  - Acute respiratory failure [Recovered/Resolved]
  - Blood creatinine increased [Recovered/Resolved]
  - Infective pulmonary exacerbation of cystic fibrosis [Recovered/Resolved]
  - Hypertension [Recovered/Resolved]
  - Bronchitis [Recovered/Resolved]
  - Infective pulmonary exacerbation of cystic fibrosis [Recovered/Resolved]
  - Infective exacerbation of bronchiectasis [Recovered/Resolved]
  - Bronchitis [Recovered/Resolved]
  - Infective pulmonary exacerbation of cystic fibrosis [Recovered/Resolved]
  - Infective pulmonary exacerbation of cystic fibrosis [Recovered/Resolved]
  - Haematuria [Recovered/Resolved]
  - Infective pulmonary exacerbation of cystic fibrosis [Recovered/Resolved]
  - Gastroenteritis norovirus [Recovered/Resolved]
  - Pneumonia [Recovered/Resolved]
  - Hypoxia [Recovered/Resolved]
  - Weight decreased [Unknown]

NARRATIVE: CASE EVENT DATE: 20160303
